FAERS Safety Report 5119144-4 (Version None)
Quarter: 2006Q3

REPORT INFORMATION
  Report Type: 
  Country: None (occurrence: None)
  Receive Date: 20060929
  Receipt Date: 20060929
  Transmission Date: 20061208
  Serious: No
  Sender: FDA-Public Use
  Company Number: None

PATIENT
  Age: 50 Year
  Sex: Female
  Weight: 56.6996 kg

DRUGS (1)
  1. LEVAQUIN [Suspect]
     Dosage: 500 MGS
     Dates: start: 20040801, end: 20040814

REACTIONS (2)
  - ARTHRALGIA [None]
  - TENDON DISORDER [None]
